FAERS Safety Report 13622282 (Version 1)
Quarter: 2017Q2

REPORT INFORMATION
  Report Type: Spontaneous
  Country: US (occurrence: US)
  Receive Date: 20170607
  Receipt Date: 20170607
  Transmission Date: 20170830
  Serious: Yes (Disabling, Other)
  Sender: FDA-Public Use
  Company Number: None

PATIENT
  Age: 77 Year
  Sex: Female
  Weight: 65.77 kg

DRUGS (2)
  1. QUETIAPINE FUMARATE 25 MG [Suspect]
     Active Substance: QUETIAPINE FUMARATE
     Indication: AGITATION
     Route: 048
     Dates: start: 20170410
  2. QUETIAPINE FUMARATE 25 MG [Suspect]
     Active Substance: QUETIAPINE FUMARATE
     Indication: BIPOLAR DISORDER
     Route: 048
     Dates: start: 20170410

REACTIONS (5)
  - Hypotension [None]
  - Confusional state [None]
  - General physical health deterioration [None]
  - Loss of personal independence in daily activities [None]
  - Impaired work ability [None]
